FAERS Safety Report 15213123 (Version 1)
Quarter: 2018Q3

REPORT INFORMATION
  Report Type: Spontaneous
  Country: ES (occurrence: ES)
  Receive Date: 20180730
  Receipt Date: 20180730
  Transmission Date: 20181010
  Serious: Yes (Other)
  Sender: FDA-Public Use
  Company Number: ES-LUPIN PHARMACEUTICALS INC.-2018-05289

PATIENT
  Age: 40 Year
  Sex: Male

DRUGS (3)
  1. CLINDAMYCIN. [Concomitant]
     Active Substance: CLINDAMYCIN
     Indication: MALARIA
     Dosage: 450 MG, TID
     Route: 042
  2. QUININE [Suspect]
     Active Substance: QUININE
     Dosage: 10 MG/KG, TID
     Route: 042
  3. QUININE [Suspect]
     Active Substance: QUININE
     Indication: MALARIA
     Dosage: 20 MG/KG, UNK
     Route: 042

REACTIONS (1)
  - Drug resistance [Unknown]
